FAERS Safety Report 18393880 (Version 2)
Quarter: 2020Q4

REPORT INFORMATION
  Report Type: Spontaneous
  Country: PT (occurrence: PT)
  Receive Date: 20201016
  Receipt Date: 20201026
  Transmission Date: 20210114
  Serious: Yes (Hospitalization, Other)
  Sender: FDA-Public Use
  Company Number: PT-NEUROCRINE BIOSCIENCES INC.-2020NBI02437

PATIENT
  Age: 73 Year
  Sex: Male
  Weight: 62 kg

DRUGS (11)
  1. MADOPAR HBS [Concomitant]
     Active Substance: BENSERAZIDE HYDROCHLORIDE\LEVODOPA
     Dosage: 1 CAPSULE 1 HOUR AFTER TAKING ONGENTYS
     Route: 048
  2. EXXIV [Concomitant]
     Active Substance: ETORICOXIB
     Indication: MUSCLE RIGIDITY
     Route: 048
  3. ONGENTYS [Suspect]
     Active Substance: OPICAPONE
     Indication: PARKINSON^S DISEASE
     Dosage: AT NIGHT
     Route: 048
     Dates: start: 201902
  4. PROZAC [Concomitant]
     Active Substance: FLUOXETINE HYDROCHLORIDE
  5. PARKADINA [Concomitant]
     Active Substance: AMANTADINE HYDROCHLORIDE
     Dosage: 1 CAPSULE AT 7 A.M
  6. NEXIUM I.V. [Concomitant]
     Active Substance: ESOMEPRAZOLE SODIUM
  7. XADAGO [Concomitant]
     Active Substance: SAFINAMIDE MESYLATE
     Route: 048
  8. EXXIV [Concomitant]
     Active Substance: ETORICOXIB
     Indication: BACK PAIN
  9. SINEMET [Concomitant]
     Active Substance: CARBIDOPA\LEVODOPA
     Indication: PARKINSON^S DISEASE
     Dosage: 25/100 - 4 TABLETS DAILY AT 7 A.M., 11 A.M., 3 P.M. AND 7 P.M.
     Route: 048
  10. TRAMADOL. [Concomitant]
     Active Substance: TRAMADOL
     Dosage: AS NEEDED
     Route: 048
  11. RAMIPRIL. [Concomitant]
     Active Substance: RAMIPRIL

REACTIONS (4)
  - Femur fracture [Recovering/Resolving]
  - Tremor [Not Recovered/Not Resolved]
  - Fall [Recovered/Resolved]
  - Balance disorder [Recovering/Resolving]

NARRATIVE: CASE EVENT DATE: 2020
